FAERS Safety Report 7381404-4 (Version None)
Quarter: 2011Q1

REPORT INFORMATION
  Report Type: 
  Country: None (occurrence: None)
  Receive Date: 20110324
  Receipt Date: 20110324
  Transmission Date: 20110831
  Serious: Yes (Life-Threatening, Hospitalization, Other)
  Sender: FDA-Public Use
  Company Number: None

PATIENT
  Sex: Male
  Weight: 100 kg

DRUGS (2)
  1. LITHIUM CARBONATE [Suspect]
     Indication: BIPOLAR DISORDER
     Dosage: LITHIUM CARBONATE 300 MG 2 TABS 2X DAY 047 MORE THAN 4+ YEARS
  2. LISINOPRIL [Suspect]
     Indication: HYPERTENSION
     Dosage: LISINOPRIL 10MG 1 TAB DAY 047
     Dates: start: 20110130, end: 20110219

REACTIONS (19)
  - DYSPNOEA [None]
  - HYPERHIDROSIS [None]
  - MOUTH HAEMORRHAGE [None]
  - DRUG INTERACTION [None]
  - ASTHENIA [None]
  - TREMOR [None]
  - INFECTION [None]
  - FATIGUE [None]
  - ANTIPSYCHOTIC DRUG LEVEL ABOVE THERAPEUTIC [None]
  - PNEUMONIA [None]
  - INCREASED UPPER AIRWAY SECRETION [None]
  - TONGUE DISORDER [None]
  - LETHARGY [None]
  - DISORIENTATION [None]
  - BLOOD GLUCOSE DECREASED [None]
  - DRY MOUTH [None]
  - URINE OUTPUT INCREASED [None]
  - RENAL IMPAIRMENT [None]
  - SCAB [None]
